FAERS Safety Report 7736981-8 (Version None)
Quarter: 2011Q3

REPORT INFORMATION
  Report Type: 
  Country: None (occurrence: None)
  Receive Date: 20110908
  Receipt Date: 20110902
  Transmission Date: 20111222
  Serious: Yes (Other)
  Sender: FDA-Public Use
  Company Number: CA-JNJFOC-20110507336

PATIENT
  Sex: Female
  Weight: 72.58 kg

DRUGS (6)
  1. NICOTINE [Suspect]
     Indication: SMOKING CESSATION THERAPY
     Dosage: STARTING WITH 10 TO 3 GUMS
     Route: 048
     Dates: start: 20090913
  2. PRILOSEC [Concomitant]
     Indication: GASTROOESOPHAGEAL REFLUX DISEASE
     Route: 048
     Dates: start: 19910101
  3. CRESTOR [Concomitant]
     Indication: BLOOD CHOLESTEROL
     Route: 048
     Dates: start: 20010101
  4. VITAMIN D [Concomitant]
     Route: 048
     Dates: start: 20090101
  5. NICOTINE [Suspect]
     Indication: SMOKING CESSATION THERAPY
     Dosage: 4 LOZENGES DAILY
     Route: 048
     Dates: start: 20090913
  6. CELEBREX [Concomitant]
     Dosage: 10 TO 12 YEARS
     Route: 048

REACTIONS (5)
  - INCORRECT DRUG ADMINISTRATION DURATION [None]
  - DEPENDENCE [None]
  - OVERDOSE [None]
  - PRODUCT QUALITY ISSUE [None]
  - GASTRIC DISORDER [None]
